FAERS Safety Report 6813471-8 (Version None)
Quarter: 2010Q3

REPORT INFORMATION
  Report Type: 
  Country: None (occurrence: None)
  Receive Date: 20100701
  Receipt Date: 20100622
  Transmission Date: 20110219
  Serious: Yes (Other)
  Sender: FDA-Public Use
  Company Number: US-PFIZER INC-2010056284

PATIENT
  Sex: Male
  Weight: 87.075 kg

DRUGS (7)
  1. LIPITOR [Suspect]
     Indication: BLOOD CHOLESTEROL INCREASED
     Dosage: UNK, DAILY
     Route: 048
     Dates: start: 20000101, end: 20100401
  2. FELODIPINE [Concomitant]
     Indication: HYPERTENSION
  3. LISINOPRIL [Concomitant]
     Indication: HYPERTENSION
  4. ZETIA [Concomitant]
  5. XANAX [Concomitant]
     Dosage: 0.5MG ONE HALF TABLET THREE TIMES PER DAY
  6. INDERAL [Concomitant]
     Indication: HYPERTENSION
  7. CITALOPRAM [Concomitant]
     Dosage: 40 MG, 1X/DAY

REACTIONS (5)
  - ASTHENIA [None]
  - FATIGUE [None]
  - HYPERTENSION [None]
  - MUSCULOSKELETAL CHEST PAIN [None]
  - MYALGIA [None]
